FAERS Safety Report 8405337-7 (Version None)
Quarter: 2012Q2

REPORT INFORMATION
  Report Type: 
  Country: None (occurrence: None)
  Receive Date: 20120604
  Receipt Date: 20120528
  Transmission Date: 20120825
  Serious: Yes (Hospitalization)
  Sender: FDA-Public Use
  Company Number: GB-AMGEN-GBRSP2012033233

PATIENT
  Age: 91 Year
  Sex: Female

DRUGS (8)
  1. PROPRANOLOL [Concomitant]
     Dosage: 80 MG, QD
  2. FUROSEMIDE [Concomitant]
     Dosage: 40 MG, QD
  3. ASPIRIN [Concomitant]
     Dosage: 75 MG, QD
  4. FERINJECT [Concomitant]
     Dosage: 1000 MG, PRN
  5. ARANESP [Suspect]
     Indication: PRODUCT USED FOR UNKNOWN INDICATION
     Dosage: 50 MUG, Q2WK
     Dates: start: 20120209, end: 20120501
  6. NITRAZEPAM [Concomitant]
     Dosage: 5 MG, QHS
  7. LACTULOSE [Concomitant]
     Dosage: 10 ML, PRN
  8. LISINOPRIL [Concomitant]
     Dosage: 10 MG, QD

REACTIONS (1)
  - EPISTAXIS [None]
